FAERS Safety Report 5388213-6 (Version None)
Quarter: 2007Q3

REPORT INFORMATION
  Report Type: 
  Country: None (occurrence: None)
  Receive Date: 20070716
  Receipt Date: 20070119
  Transmission Date: 20080115
  Serious: No
  Sender: FDA-Public Use
  Company Number: A0636118A

PATIENT
  Age: 67 Year
  Sex: Male

DRUGS (3)
  1. NICORETTE [Suspect]
     Dates: end: 20070112
  2. ELAVIL [Concomitant]
  3. ANTI HYPERTENSIVE [Concomitant]

REACTIONS (6)
  - ABDOMINAL DISTENSION [None]
  - DIARRHOEA [None]
  - FLATULENCE [None]
  - GASTROINTESTINAL SOUNDS ABNORMAL [None]
  - MALAISE [None]
  - NAUSEA [None]
